FAERS Safety Report 10480780 (Version 1)
Quarter: 2014Q3

REPORT INFORMATION
  Report Type: Spontaneous
  Country: US (occurrence: US)
  Receive Date: 20140929
  Receipt Date: 20140929
  Transmission Date: 20150326
  Serious: No
  Sender: FDA-Public Use
  Company Number: US-PFIZER INC-2014262727

PATIENT
  Sex: Female

DRUGS (1)
  1. PREMARIN [Suspect]
     Active Substance: ESTROGENS, CONJUGATED
     Dosage: UNK (AT LEAST 3 TO 4 TIMES)

REACTIONS (3)
  - Expired product administered [Unknown]
  - Therapeutic response changed [Unknown]
  - Pre-existing condition improved [Unknown]
